FAERS Safety Report 24174636 (Version 2)
Quarter: 2024Q4

REPORT INFORMATION
  Report Type: Spontaneous
  Country: US (occurrence: US)
  Receive Date: 20240805
  Receipt Date: 20241105
  Transmission Date: 20250114
  Serious: Yes (Other)
  Sender: PFIZER
  Company Number: US-PFIZER INC-202400228265

PATIENT
  Age: 65 Year
  Sex: Male
  Weight: 79.83 kg

DRUGS (2)
  1. CAVERJECT [Suspect]
     Active Substance: ALPROSTADIL
     Indication: Bladder cancer
     Dosage: 20MCG, SUPPOSED TO BE ONE UP TO THREE TIMES A WEEK
     Dates: start: 202407
  2. CAVERJECT [Suspect]
     Active Substance: ALPROSTADIL
     Indication: Erectile dysfunction

REACTIONS (1)
  - Drug ineffective [Unknown]
